FAERS Safety Report 8885576 (Version 2)
Quarter: 2012Q4

REPORT INFORMATION
  Report Type: 
  Country: JP (occurrence: JP)
  Receive Date: 20121101
  Receipt Date: 20121126
  Transmission Date: 20130627
  Serious: Yes (Hospitalization)
  Sender: FDA-Public Use
  Company Number: JP-009507513-1210JPN011070

PATIENT
  Age: 19 Year
  Sex: Female

DRUGS (3)
  1. RIZATRIPTAN BENZOATE [Suspect]
     Indication: CLUSTER HEADACHE
     Dosage: 10 mg, prn
     Route: 048
     Dates: start: 20120604, end: 20120619
  2. VASOLAN [Suspect]
     Indication: CLUSTER HEADACHE
     Dosage: 240mg daily
     Route: 048
     Dates: start: 20120604, end: 20120619
  3. TRYPTANOL [Suspect]
     Indication: CLUSTER HEADACHE
     Dosage: 3 DF daily
     Route: 048
     Dates: start: 20120612, end: 20120619

REACTIONS (1)
  - Drug eruption [Recovered/Resolved]
